FAERS Safety Report 23798244 (Version 1)
Quarter: 2024Q2

REPORT INFORMATION
  Report Type: Spontaneous
  Country: AR (occurrence: AR)
  Receive Date: 20240430
  Receipt Date: 20240430
  Transmission Date: 20240716
  Serious: Yes (Death, Hospitalization, Other)
  Sender: FDA-Public Use
  Company Number: AR-Merck Healthcare KGaA-2024022349

PATIENT
  Age: 8 Decade
  Sex: Female
  Weight: 65 kg

DRUGS (2)
  1. METFORMIN [Suspect]
     Active Substance: METFORMIN HYDROCHLORIDE
     Indication: Diabetes mellitus
     Dates: start: 2014
  2. XELJANZ XR [Suspect]
     Active Substance: TOFACITINIB CITRATE
     Indication: Rheumatoid arthritis
     Route: 048

REACTIONS (9)
  - Cerebrovascular accident [Fatal]
  - Multiple organ dysfunction syndrome [Fatal]
  - Haemophagocytic lymphohistiocytosis [Fatal]
  - Antiphospholipid syndrome [Fatal]
  - Hyperglycaemia [Fatal]
  - Skin lesion [Fatal]
  - Anaemia [Fatal]
  - Lymphopenia [Fatal]
  - Metabolic acidosis [Fatal]

NARRATIVE: CASE EVENT DATE: 20230731
